FAERS Safety Report 10947286 (Version 1)
Quarter: 2015Q1

REPORT INFORMATION
  Report Type: Spontaneous
  Country: BR (occurrence: BR)
  Receive Date: 20150323
  Receipt Date: 20150323
  Transmission Date: 20150721
  Serious: Yes (Other)
  Sender: FDA-Public Use
  Company Number: BR-PFIZER INC-2015078338

PATIENT
  Age: 67 Year
  Sex: Female

DRUGS (1)
  1. CITALOR [Suspect]
     Active Substance: ATORVASTATIN
     Indication: BLOOD CHOLESTEROL INCREASED
     Dosage: 10 MG, 1X/DAY
     Route: 048
     Dates: start: 201207, end: 201309

REACTIONS (3)
  - Blood pressure increased [Unknown]
  - Drug interaction [Unknown]
  - Depression [Unknown]

NARRATIVE: CASE EVENT DATE: 201207
